FAERS Safety Report 20029607 (Version 1)
Quarter: 2021Q4

REPORT INFORMATION
  Report Type: Spontaneous
  Country: FR (occurrence: FR)
  Receive Date: 20211103
  Receipt Date: 20211103
  Transmission Date: 20220303
  Serious: Yes (Hospitalization)
  Sender: FDA-Public Use
  Company Number: FR-ABBVIE-21K-056-4138951-00

PATIENT
  Sex: Female

DRUGS (6)
  1. VALPROATE SODIUM [Suspect]
     Active Substance: VALPROATE SODIUM
     Indication: Product used for unknown indication
     Route: 065
     Dates: start: 19960304, end: 201610
  2. GABAPENTIN [Suspect]
     Active Substance: GABAPENTIN
     Indication: Product used for unknown indication
     Route: 065
     Dates: start: 19960304, end: 19961021
  3. CLOBAZAM [Concomitant]
     Active Substance: CLOBAZAM
     Indication: Product used for unknown indication
     Route: 065
     Dates: start: 199610
  4. FOLIC ACID [Concomitant]
     Active Substance: FOLIC ACID
     Indication: Product used for unknown indication
     Route: 065
     Dates: start: 19960320
  5. ALDOMET [Concomitant]
     Active Substance: METHYLDOPA
     Indication: Product used for unknown indication
     Route: 065
  6. TRANXENE [Concomitant]
     Active Substance: CLORAZEPATE DIPOTASSIUM
     Indication: Product used for unknown indication
     Route: 065
     Dates: start: 199610

REACTIONS (4)
  - Petit mal epilepsy [Unknown]
  - Hypertension [Unknown]
  - Maternal exposure during pregnancy [Unknown]
  - Live birth [Unknown]

NARRATIVE: CASE EVENT DATE: 19961001
